FAERS Safety Report 6030675-5 (Version None)
Quarter: 2009Q1

REPORT INFORMATION
  Report Type: 
  Country: None (occurrence: None)
  Receive Date: 20090106
  Receipt Date: 20090106
  Transmission Date: 20090719
  Serious: Yes (Other)
  Sender: FDA-Public Use
  Company Number: None

PATIENT
  Sex: Male
  Weight: 99.7913 kg

DRUGS (1)
  1. SERTRALINE HCL [Suspect]
     Indication: POST-TRAUMATIC STRESS DISORDER
     Dosage: 150 MG QD PO
     Route: 048
     Dates: start: 20070201, end: 20080105

REACTIONS (5)
  - DISTURBANCE IN SEXUAL AROUSAL [None]
  - ERECTILE DYSFUNCTION [None]
  - LIBIDO DECREASED [None]
  - ORGASM ABNORMAL [None]
  - SEXUAL DYSFUNCTION [None]
